FAERS Safety Report 10961737 (Version 2)
Quarter: 2015Q2

REPORT INFORMATION
  Report Type: Spontaneous
  Country: CH (occurrence: CH)
  Receive Date: 20150327
  Receipt Date: 20150407
  Transmission Date: 20150821
  Serious: Yes (Hospitalization, Other)
  Sender: FDA-Public Use
  Company Number: CH-ABBVIE-15P-151-1364983-00

PATIENT
  Age: 48 Year
  Sex: Female

DRUGS (11)
  1. REYATAZ [Interacting]
     Active Substance: ATAZANAVIR SULFATE
     Indication: HIV INFECTION
     Dosage: LONG-TERM
     Route: 048
  2. CYCLOSPORINE. [Interacting]
     Active Substance: CYCLOSPORINE
     Indication: PRODUCT USED FOR UNKNOWN INDICATION
     Dosage: LONG-TERM
     Route: 048
  3. LERCANIDIPINE HYDROCHLORIDE [Concomitant]
     Active Substance: LERCANIDIPINE HYDROCHLORIDE
     Indication: PRODUCT USED FOR UNKNOWN INDICATION
     Dosage: LONG-TERM
     Route: 048
  4. ASPIRIN CARDIO [Concomitant]
     Active Substance: ASPIRIN
     Indication: PRODUCT USED FOR UNKNOWN INDICATION
     Dosage: LONG-TERM
     Route: 048
  5. LINAGLIPTIN [Concomitant]
     Active Substance: LINAGLIPTIN
     Indication: PRODUCT USED FOR UNKNOWN INDICATION
     Dosage: LONG-TERM
     Route: 048
     Dates: end: 20150205
  6. MIRTAZAPINE. [Concomitant]
     Active Substance: MIRTAZAPINE
     Indication: PRODUCT USED FOR UNKNOWN INDICATION
     Dosage: LONG-TERM
     Route: 048
     Dates: end: 20150205
  7. CELLCEPT [Concomitant]
     Active Substance: MYCOPHENOLATE MOFETIL\MYCOPHENOLATE MOFETIL HYDROCHLORIDE
     Indication: PRODUCT USED FOR UNKNOWN INDICATION
     Route: 048
  8. NORVIR [Suspect]
     Active Substance: RITONAVIR
     Indication: HIV INFECTION
     Dosage: LONG TERM
     Route: 048
  9. STOCRIN [Concomitant]
     Active Substance: EFAVIRENZ
     Indication: HIV INFECTION
     Dosage: LONG-TERM
     Route: 048
  10. INEGY [Interacting]
     Active Substance: EZETIMIBE\SIMVASTATIN
     Indication: PRODUCT USED FOR UNKNOWN INDICATION
     Route: 048
     Dates: start: 201404, end: 20150205
  11. CITALOPRAM HYDROBROMIDE. [Concomitant]
     Active Substance: CITALOPRAM HYDROBROMIDE
     Indication: PRODUCT USED FOR UNKNOWN INDICATION
     Dosage: LONG-TERM
     Route: 048
     Dates: end: 20150205

REACTIONS (6)
  - Urinary tract infection [Unknown]
  - Discomfort [Unknown]
  - Cell death [Unknown]
  - Drug interaction [Unknown]
  - Rhabdomyolysis [Recovered/Resolved]
  - Haemoglobinuria [Unknown]

NARRATIVE: CASE EVENT DATE: 201502
